FAERS Safety Report 6346636-2 (Version None)
Quarter: 2009Q3

REPORT INFORMATION
  Report Type: 
  Country: None (occurrence: None)
  Receive Date: 20090901
  Receipt Date: 20090820
  Transmission Date: 20100115
  Serious: Yes (Other)
  Sender: FDA-Public Use
  Company Number: SG-JNJFOC-20090806626

PATIENT
  Sex: Female

DRUGS (1)
  1. DECITABINE (DECITABINE) LYOPHILIZED POWDER [Suspect]
     Indication: MYELODYSPLASTIC SYNDROME
     Dosage: 1ST INFUSION INTRAVENOUS; INTRAVENOUS
     Route: 042
     Dates: start: 20090817

REACTIONS (1)
  - ACUTE FEBRILE NEUTROPHILIC DERMATOSIS [None]
